FAERS Safety Report 16000283 (Version 1)
Quarter: 2019Q1

REPORT INFORMATION
  Report Type: Spontaneous
  Country: FR (occurrence: FR)
  Receive Date: 20190225
  Receipt Date: 20190225
  Transmission Date: 20190418
  Serious: Yes (Life-Threatening)
  Sender: FDA-Public Use
  Company Number: FR-LEO PHARMA-316932

PATIENT
  Age: 23 Year
  Sex: Female
  Weight: 55 kg

DRUGS (1)
  1. PROTOPIC [Suspect]
     Active Substance: TACROLIMUS
     Indication: DERMATITIS ATOPIC
     Route: 003
     Dates: start: 200001, end: 201001

REACTIONS (2)
  - Incorrect product administration duration [Unknown]
  - Hodgkin^s disease mixed cellularity stage II supradiaphragmatic [Recovered/Resolved]

NARRATIVE: CASE EVENT DATE: 20100101
